FAERS Safety Report 18588395 (Version 1)
Quarter: 2020Q4

REPORT INFORMATION
  Report Type: Spontaneous
  Country: US (occurrence: US)
  Receive Date: 20201207
  Receipt Date: 20201207
  Transmission Date: 20210114
  Serious: No
  Sender: FDA-Public Use
  Company Number: US-SIGMAPHARM LABORATORIES, LLC-2020SIG00105

PATIENT
  Sex: Female
  Weight: 54.88 kg

DRUGS (3)
  1. LIOTHYRONINE SODIUM. [Suspect]
     Active Substance: LIOTHYRONINE SODIUM
     Dosage: 5 MCG, 4X/DAY
     Route: 048
  2. B PLUS C COMPLEX [Concomitant]
  3. LIOTHYRONINE SODIUM. [Suspect]
     Active Substance: LIOTHYRONINE SODIUM
     Indication: HYPOTHYROIDISM
     Dosage: 5 MCG, 3X/DAY
     Route: 048

REACTIONS (2)
  - Expired product administered [Recovered/Resolved]
  - Fatigue [Recovered/Resolved]
